FAERS Safety Report 14868820 (Version 2)
Quarter: 2019Q1

REPORT INFORMATION
  Report Type: Spontaneous
  Country: US (occurrence: US)
  Receive Date: 20180509
  Receipt Date: 20190218
  Transmission Date: 20190417
  Serious: No
  Sender: FDA-Public Use
  Company Number: US-PFIZER INC-2017467030

PATIENT
  Age: 2 Year
  Sex: Male

DRUGS (4)
  1. GENOTROPIN MQ [Suspect]
     Active Substance: SOMATROPIN
     Indication: DEVELOPMENTAL HIP DYSPLASIA
     Dosage: 0.2 MG, DAILY
     Route: 058
     Dates: start: 201705
  2. GENOTROPIN MQ [Suspect]
     Active Substance: SOMATROPIN
     Dosage: 0.4 MG, 5 DAYS PER WEEK
     Route: 058
  3. GENOTROPIN MQ [Suspect]
     Active Substance: SOMATROPIN
     Indication: PRADER-WILLI SYNDROME
     Dosage: 0.4 MG, ONCE A DAY FIVE DAYS A WEEK
     Route: 058
  4. GENOTROPIN MQ [Suspect]
     Active Substance: SOMATROPIN
     Dosage: 0.4 MG, 5 DAYS PER WEEK
     Dates: start: 201705, end: 201803

REACTIONS (2)
  - Product prescribing error [Unknown]
  - Sleep apnoea syndrome [Unknown]
